FAERS Safety Report 11071400 (Version 1)
Quarter: 2015Q2

REPORT INFORMATION
  Report Type: Spontaneous
  Country: IT (occurrence: None)
  Receive Date: 20150424
  Receipt Date: 20150424
  Transmission Date: 20150821
  Serious: Yes (Hospitalization)
  Sender: FDA-Public Use
  Company Number: CL-627-2015

PATIENT
  Age: 70 Year
  Sex: Female

DRUGS (1)
  1. CIPROFLOXACIN. [Suspect]
     Active Substance: CIPROFLOXACIN
     Indication: URINARY TRACT INFECTION
     Dosage: OD
     Route: 048
     Dates: start: 20150202, end: 20150209

REACTIONS (1)
  - Eczema [None]

NARRATIVE: CASE EVENT DATE: 20150209
